FAERS Safety Report 5688119-9 (Version None)
Quarter: 2008Q1

REPORT INFORMATION
  Report Type: 
  Country: None (occurrence: None)
  Receive Date: 20080327
  Receipt Date: 20080319
  Transmission Date: 20080703
  Serious: Yes (Death)
  Sender: FDA-Public Use
  Company Number: 025273

PATIENT
  Sex: Female

DRUGS (1)
  1. MIRCETTE [Suspect]
     Dosage: ORAL
     Route: 048

REACTIONS (1)
  - THROMBOSIS [None]
